FAERS Safety Report 21509862 (Version 1)
Quarter: 2022Q4

REPORT INFORMATION
  Report Type: Spontaneous
  Country: JP (occurrence: JP)
  Receive Date: 20221026
  Receipt Date: 20221026
  Transmission Date: 20230112
  Serious: Yes (Other)
  Sender: FDA-Public Use
  Company Number: JP-JAZZ-2021-JP-011120

PATIENT
  Age: 1 Year
  Sex: Female
  Weight: 9.4 kg

DRUGS (1)
  1. DEFITELIO [Suspect]
     Active Substance: DEFIBROTIDE SODIUM
     Indication: Venoocclusive liver disease
     Dosage: 25 MILLIGRAM/KILOGRAM, QD
     Route: 042
     Dates: start: 20210129, end: 20210228

REACTIONS (2)
  - Haematochezia [Recovering/Resolving]
  - Graft versus host disease [Recovering/Resolving]

NARRATIVE: CASE EVENT DATE: 20210228
